FAERS Safety Report 8548768-7 (Version None)
Quarter: 2012Q3

REPORT INFORMATION
  Report Type: 
  Country: None (occurrence: None)
  Receive Date: 20120730
  Receipt Date: 20120724
  Transmission Date: 20120928
  Serious: Yes (Other)
  Sender: FDA-Public Use
  Company Number: PHHY2012JP064110

PATIENT
  Age: 83 Year
  Sex: Male

DRUGS (4)
  1. EXELON [Suspect]
     Indication: DEMENTIA ALZHEIMER'S TYPE
     Dosage: 18 MG, DAILY
     Route: 062
     Dates: start: 20111222
  2. MEMANTINE HYDROCHLORIDE [Suspect]
     Dosage: 10 MG, DAILY
     Route: 048
  3. EXELON [Suspect]
     Dosage: 9 MG, DAILY
     Route: 048
  4. MEMANTINE HYDROCHLORIDE [Suspect]
     Dosage: 20 MG, DAILY
     Route: 048
     Dates: start: 20111222

REACTIONS (3)
  - SOMNOLENCE [None]
  - BLOOD PRESSURE INCREASED [None]
  - COMA [None]
